FAERS Safety Report 7815115-5 (Version None)
Quarter: 2011Q4

REPORT INFORMATION
  Report Type: 
  Country: None (occurrence: None)
  Receive Date: 20111014
  Receipt Date: 20111004
  Transmission Date: 20120403
  Serious: Yes (Death, Hospitalization)
  Sender: FDA-Public Use
  Company Number: US-JNJFOC-20100406767

PATIENT
  Sex: Male
  Weight: 111.59 kg

DRUGS (16)
  1. REMICADE [Suspect]
     Route: 042
     Dates: start: 20030711
  2. PENTASA [Concomitant]
     Indication: CROHN'S DISEASE
  3. REMICADE [Suspect]
     Route: 042
     Dates: start: 20030516
  4. REMICADE [Suspect]
     Route: 042
     Dates: start: 20020710
  5. REMICADE [Suspect]
     Route: 042
     Dates: start: 20031211
  6. REMICADE [Suspect]
     Route: 042
     Dates: start: 20030911
  7. ACETAMINOPHEN [Concomitant]
     Indication: PREMEDICATION
     Dates: start: 20031211
  8. ACETAMINOPHEN [Concomitant]
     Dates: start: 20020710
  9. ANTIHISTAMINE [Concomitant]
     Dates: start: 20031211
  10. REMICADE [Suspect]
     Route: 042
     Dates: start: 20020912
  11. REMICADE [Suspect]
     Indication: CROHN'S DISEASE
     Route: 042
     Dates: start: 20030320
  12. REMICADE [Suspect]
     Route: 042
     Dates: start: 20021107
  13. MERCAPTOPURINE [Suspect]
     Indication: CROHN'S DISEASE
  14. REMICADE [Suspect]
     Route: 042
     Dates: start: 20030103
  15. ANTIHISTAMINE [Concomitant]
     Indication: PREMEDICATION
     Dates: start: 20020710
  16. BUDESONIDE [Concomitant]
     Indication: CROHN'S DISEASE

REACTIONS (7)
  - NEUTROPENIA [None]
  - PNEUMONIA [None]
  - DECUBITUS ULCER [None]
  - MUSCULAR WEAKNESS [None]
  - CACHEXIA [None]
  - TONGUE NEOPLASM MALIGNANT STAGE UNSPECIFIED [None]
  - SEPSIS [None]
